FAERS Safety Report 21216254 (Version 1)
Quarter: 2022Q3

REPORT INFORMATION
  Report Type: Spontaneous
  Country: US (occurrence: None)
  Receive Date: 20220815
  Receipt Date: 20220815
  Transmission Date: 20221026
  Serious: Yes (Hospitalization)
  Sender: FDA-Public Use
  Company Number: None

PATIENT
  Age: 75 Year
  Sex: Male
  Weight: 79.9 kg

DRUGS (1)
  1. KEYTRUDA [Suspect]
     Active Substance: PEMBROLIZUMAB
     Indication: Non-small cell lung cancer metastatic
     Dosage: FREQUENCY : EVERY THREE WEEKS;?
     Route: 040
     Dates: start: 20220318

REACTIONS (3)
  - Mood altered [None]
  - Ischaemic stroke [None]
  - Cerebral artery occlusion [None]

NARRATIVE: CASE EVENT DATE: 20220810
